FAERS Safety Report 21195106 (Version 1)
Quarter: 2022Q3

REPORT INFORMATION
  Report Type: Spontaneous
  Country: US (occurrence: US)
  Receive Date: 20220810
  Receipt Date: 20220810
  Transmission Date: 20221026
  Serious: Yes (Other)
  Sender: FDA-Public Use
  Company Number: US-SA-SAC20220808002143

PATIENT
  Age: 68 Year
  Sex: Female

DRUGS (1)
  1. ZANTAC [Suspect]
     Active Substance: RANITIDINE HYDROCHLORIDE
     Indication: Hyperchlorhydria
     Dosage: FREQUENCY : OTHER
     Dates: start: 199001, end: 201512

REACTIONS (2)
  - Lung neoplasm malignant [Unknown]
  - Breast cancer stage II [Recovering/Resolving]

NARRATIVE: CASE EVENT DATE: 20150701
